FAERS Safety Report 4352610-8 (Version None)
Quarter: 2004Q2

REPORT INFORMATION
  Report Type: 
  Country: None (occurrence: None)
  Receive Date: 20040504
  Receipt Date: 20040426
  Transmission Date: 20050107
  Serious: Yes (Disabling, Other)
  Sender: FDA-Public Use
  Company Number: ES-JNJFOC-20040403947

PATIENT
  Age: 74 Year
  Sex: Male
  Weight: 67 kg

DRUGS (5)
  1. HALDOL [Suspect]
     Route: 049
  2. HALDOL [Suspect]
     Indication: DRUG USE FOR UNKNOWN INDICATION
     Dosage: 7-0-8
     Route: 049
  3. DISGREN [Concomitant]
     Dosage: 1-0-1
  4. PROPRANOLOL [Concomitant]
  5. LORAZEPAM [Concomitant]
     Dosage: 1-0-0

REACTIONS (6)
  - ABNORMAL BEHAVIOUR [None]
  - DELIRIUM [None]
  - EXTRAPYRAMIDAL DISORDER [None]
  - INSOMNIA [None]
  - MUSCLE RIGIDITY [None]
  - RESTLESSNESS [None]
